FAERS Safety Report 19512537 (Version 2)
Quarter: 2021Q3

REPORT INFORMATION
  Report Type: Other
  Country: MY (occurrence: MY)
  Receive Date: 20210709
  Receipt Date: 20210805
  Transmission Date: 20211014
  Serious: Yes (Other)
  Sender: FDA-Public Use
  Company Number: MY-ROCHE-2864199

PATIENT
  Age: 17 Month
  Sex: Female
  Weight: 7.2 kg

DRUGS (2)
  1. HEPARIN [Concomitant]
     Active Substance: HEPARIN SODIUM
     Indication: PRODUCT USED FOR UNKNOWN INDICATION
     Dosage: 50 U/KG , ROUTE OF BOLUS WAS DIRECT CATHETER GUIDED
  2. METALYSE [Suspect]
     Active Substance: TENECTEPLASE
     Indication: VASCULAR STENT THROMBOSIS
     Dosage: 100 U /KG INFUSION VIA ROUTE OF BOLUS WAS DIRECT CATHETER GUIDED
     Route: 040

REACTIONS (4)
  - Off label use [Unknown]
  - Hypoxia [Recovering/Resolving]
  - Injection site deformation [Unknown]
  - Seizure [Unknown]
